FAERS Safety Report 11782440 (Version 1)
Quarter: 2015Q4

REPORT INFORMATION
  Report Type: Spontaneous
  Country: BR (occurrence: BR)
  Receive Date: 20151127
  Receipt Date: 20151127
  Transmission Date: 20160305
  Serious: Yes (Other)
  Sender: FDA-Public Use
  Company Number: BR-ROCHE-1666779

PATIENT
  Sex: Female
  Weight: 57.8 kg

DRUGS (1)
  1. BONVIVA [Suspect]
     Active Substance: IBANDRONATE SODIUM
     Indication: OSTEOPOROSIS PROPHYLAXIS
     Route: 065
     Dates: start: 2012, end: 2015

REACTIONS (8)
  - Body height decreased [Unknown]
  - Hiatus hernia [Unknown]
  - Rheumatoid arthritis [Not Recovered/Not Resolved]
  - Osteopenia [Not Recovered/Not Resolved]
  - Osteoarthritis [Unknown]
  - Visual impairment [Unknown]
  - Glaucoma [Not Recovered/Not Resolved]
  - Gastritis [Not Recovered/Not Resolved]

NARRATIVE: CASE EVENT DATE: 2015
